FAERS Safety Report 4436334-4 (Version None)
Quarter: 2004Q3

REPORT INFORMATION
  Report Type: 
  Country: None (occurrence: None)
  Receive Date: 20040728
  Receipt Date: 20030625
  Transmission Date: 20050211
  Serious: Yes (Death)
  Sender: FDA-Public Use
  Company Number: 201395

PATIENT
  Age: 78 Year
  Sex: Female

DRUGS (5)
  1. RITUXAN [Suspect]
     Indication: NON-HODGKIN'S LYMPHOMA
     Dosage: 375 MG/M2, SINGLE, INTRAVENOUS
     Route: 042
     Dates: start: 20030616, end: 20030616
  2. CYCLOPHOSPHAMIDE [Concomitant]
  3. DOXORUBICIN HYDROCHLORIDE [Concomitant]
  4. VINCRISTINE [Concomitant]
  5. PREDNISONE [Concomitant]

REACTIONS (3)
  - CONFUSIONAL STATE [None]
  - HYPOTENSION [None]
  - RESPIRATORY DISTRESS [None]
